FAERS Safety Report 6701172-6 (Version None)
Quarter: 2010Q2

REPORT INFORMATION
  Report Type: 
  Country: None (occurrence: None)
  Receive Date: 20100428
  Receipt Date: 20100428
  Transmission Date: 20101027
  Serious: No
  Sender: FDA-Public Use
  Company Number: None

PATIENT
  Age: 64 Year
  Sex: Male
  Weight: 83.9154 kg

DRUGS (1)
  1. INTELENCE [Suspect]
     Indication: HIV TEST POSITIVE
     Dosage: 2 TABLETS TWICE DAILY PO
     Route: 048
     Dates: start: 20080429, end: 20080821

REACTIONS (3)
  - ABASIA [None]
  - DYSSTASIA [None]
  - NEUROPATHY PERIPHERAL [None]
